FAERS Safety Report 8207298-2 (Version None)
Quarter: 2012Q1

REPORT INFORMATION
  Report Type: 
  Country: None (occurrence: None)
  Receive Date: 20120314
  Receipt Date: 20120307
  Transmission Date: 20120608
  Serious: Yes (Other)
  Sender: FDA-Public Use
  Company Number: US-JNJFOC-20120304040

PATIENT
  Age: 56 Year
  Sex: Male

DRUGS (3)
  1. XARELTO [Suspect]
     Indication: HIP ARTHROPLASTY
     Route: 048
  2. ANTIPSYCHOTICS [Concomitant]
  3. ANTIVIRALS [Concomitant]

REACTIONS (1)
  - DEEP VEIN THROMBOSIS [None]
